FAERS Safety Report 23319967 (Version 1)
Quarter: 2023Q4

REPORT INFORMATION
  Report Type: Spontaneous
  Country: AU (occurrence: AU)
  Receive Date: 20231220
  Receipt Date: 20231220
  Transmission Date: 20240109
  Serious: Yes (Other)
  Sender: FDA-Public Use
  Company Number: AU-MYLANLABS-2023M1134333

PATIENT
  Sex: Female

DRUGS (4)
  1. XALATAN [Suspect]
     Active Substance: LATANOPROST
     Indication: Glaucoma
     Dosage: UNK, BID
     Route: 047
     Dates: start: 202307
  2. XALATAN [Suspect]
     Active Substance: LATANOPROST
     Dosage: UNK, BID
     Route: 047
     Dates: start: 20231202
  3. AZARGA [Concomitant]
     Active Substance: BRINZOLAMIDE\TIMOLOL MALEATE
     Dosage: 1 DOSAGE FORM, BID
     Route: 047
  4. CELEBREX [Concomitant]
     Active Substance: CELECOXIB
     Dosage: UNK, QD, (DOSAGE: 1-2)
     Route: 048

REACTIONS (3)
  - Drug ineffective [Unknown]
  - Eye pain [Unknown]
  - Eye irritation [Unknown]
